FAERS Safety Report 19551746 (Version 1)
Quarter: 2021Q3

REPORT INFORMATION
  Report Type: Spontaneous
  Country: JP (occurrence: JP)
  Receive Date: 20210715
  Receipt Date: 20210715
  Transmission Date: 20211014
  Serious: Yes (Hospitalization, Disabling, Other)
  Sender: FDA-Public Use
  Company Number: JP-009507513-2011JPN003601J

PATIENT
  Age: 65 Year
  Sex: Female
  Weight: 56 kg

DRUGS (4)
  1. KEYTRUDA [Suspect]
     Active Substance: PEMBROLIZUMAB
     Indication: LUNG ADENOCARCINOMA STAGE IV
     Dosage: 200 MILLIGRAM, Q3W
     Route: 041
     Dates: start: 20191106, end: 20191106
  2. PANVITAN [ASCORBIC ACID;CALCIUM PANTOTHENATE;CYANOCOBALAMIN;ERGOCALCIF [Concomitant]
     Indication: LUNG ADENOCARCINOMA STAGE IV
     Dosage: 1 GRAM, QD
     Route: 048
     Dates: start: 20191030
  3. CARBOPLATIN. [Concomitant]
     Active Substance: CARBOPLATIN
     Indication: LUNG ADENOCARCINOMA STAGE IV
     Dosage: 560 MILLIGRAM, Q3W
     Route: 041
     Dates: start: 20191106, end: 20191106
  4. PEMETREXED DISODIUM [Concomitant]
     Active Substance: PEMETREXED DISODIUM
     Indication: LUNG ADENOCARCINOMA STAGE IV
     Dosage: 15 MILLIGRAM, Q3W
     Route: 041
     Dates: start: 20191106, end: 20191106

REACTIONS (5)
  - Rash [Recovered/Resolved]
  - Immune-mediated hypothyroidism [Recovered/Resolved]
  - Immune-mediated hyperthyroidism [Recovered/Resolved]
  - Stress cardiomyopathy [Recovered/Resolved]
  - Immune-mediated myocarditis [Recovering/Resolving]

NARRATIVE: CASE EVENT DATE: 20191114
